FAERS Safety Report 4745396-6 (Version None)
Quarter: 2005Q3

REPORT INFORMATION
  Report Type: 
  Country: None (occurrence: None)
  Receive Date: 20050812
  Receipt Date: 20040811
  Transmission Date: 20060218
  Serious: Yes (Other)
  Sender: FDA-Public Use
  Company Number: PHHO2004US11410

PATIENT
  Age: 87 Year
  Sex: Male

DRUGS (2)
  1. VISUDYNE [Suspect]
     Indication: MACULAR DEGENERATION
     Dosage: 6 MG/M^2 ONCE IV
     Route: 042
     Dates: start: 20040615, end: 20040615
  2. KENALOG [Suspect]
     Indication: MACULAR DEGENERATION
     Dosage: 1 MG DAILY EY
     Dates: start: 20040615, end: 20040615

REACTIONS (1)
  - VISUAL ACUITY REDUCED [None]
